FAERS Safety Report 19482170 (Version 1)
Quarter: 2021Q3

REPORT INFORMATION
  Report Type: Spontaneous
  Country: US (occurrence: US)
  Receive Date: 20210701
  Receipt Date: 20210701
  Transmission Date: 20211014
  Serious: No
  Sender: FDA-Public Use
  Company Number: US-PFIZER INC-2021591728

PATIENT
  Age: 65 Year
  Sex: Female
  Weight: 78.47 kg

DRUGS (2)
  1. ZIRABEV [Suspect]
     Active Substance: BEVACIZUMAB-BVZR
     Indication: OVARIAN CANCER
     Dosage: UNK
     Dates: start: 202009
  2. ZIRABEV [Suspect]
     Active Substance: BEVACIZUMAB-BVZR
     Dosage: UNK
     Route: 042
     Dates: start: 20210120

REACTIONS (6)
  - Peripheral swelling [Unknown]
  - Pain [Unknown]
  - Musculoskeletal discomfort [Unknown]
  - Contusion [Unknown]
  - Sleep disorder [Unknown]
  - Movement disorder [Unknown]
